FAERS Safety Report 4878817-9 (Version None)
Quarter: 2006Q1

REPORT INFORMATION
  Report Type: 
  Country: None (occurrence: None)
  Receive Date: 20060112
  Receipt Date: 20051114
  Transmission Date: 20060701
  Serious: Yes (Death)
  Sender: FDA-Public Use
  Company Number: US-GLAXOSMITHKLINE-A0582202A

PATIENT
  Age: 62 Year
  Sex: Female

DRUGS (3)
  1. NAVELBINE [Suspect]
     Indication: DRUG USE FOR UNKNOWN INDICATION
     Route: 042
     Dates: start: 20050511, end: 20050713
  2. ZOMETA [Concomitant]
  3. ARANESP [Concomitant]

REACTIONS (2)
  - DEATH [None]
  - OFF LABEL USE [None]
